FAERS Safety Report 11071583 (Version 1)
Quarter: 2015Q2

REPORT INFORMATION
  Report Type: Report from Study
  Country: JP (occurrence: None)
  Receive Date: 20150424
  Receipt Date: 20150424
  Transmission Date: 20150821
  Serious: Yes (Hospitalization)
  Sender: FDA-Public Use
  Company Number: 2015FE01310

PATIENT
  Age: 84 Year
  Sex: Male

DRUGS (10)
  1. AZILVA (AZILSARTAN) [Concomitant]
  2. LANTUS [Concomitant]
     Active Substance: INSULIN GLARGINE
  3. GONAX (DEGARELIX) POWDER AND SOLVENT FOR SOLUTION  FOR INJECTION [Suspect]
     Active Substance: DEGARELIX
     Indication: PROSTATE CANCER
     Dosage: 240 MG, ONCE/SINGLE
     Route: 058
     Dates: start: 20130322, end: 20130322
  4. CASODEX [Concomitant]
     Active Substance: BICALUTAMIDE
  5. EQUA (VILDAGLIPTIN) [Concomitant]
     Active Substance: VILDAGLIPTIN
  6. NORVASC [Concomitant]
     Active Substance: AMLODIPINE BESYLATE
  7. ATELEC (CILNIDIPINE) [Concomitant]
     Active Substance: CILNIDIPINE
  8. NOVORAPID [Concomitant]
     Active Substance: INSULIN ASPART
  9. OLMETEC (OLMESARTAN MEDOXOMIL) [Concomitant]
     Active Substance: OLMESARTAN MEDOXOMIL
  10. CARDENALIN (DOXAZOSIN MESILATE) [Concomitant]

REACTIONS (1)
  - Cerebral infarction [None]

NARRATIVE: CASE EVENT DATE: 20140710
